FAERS Safety Report 5531053-5 (Version None)
Quarter: 2007Q4

REPORT INFORMATION
  Report Type: 
  Country: None (occurrence: None)
  Receive Date: 20071130
  Receipt Date: 20071122
  Transmission Date: 20080405
  Serious: Yes (Death)
  Sender: FDA-Public Use
  Company Number: KR-PFIZER INC-2007098381

PATIENT
  Sex: Female

DRUGS (1)
  1. CYTOTEC [Suspect]
     Indication: LABOUR INDUCTION

REACTIONS (2)
  - DEATH [None]
  - OFF LABEL USE [None]
